FAERS Safety Report 4781415-9 (Version None)
Quarter: 2005Q3

REPORT INFORMATION
  Report Type: 
  Country: None (occurrence: None)
  Receive Date: 20050928
  Receipt Date: 20050621
  Transmission Date: 20060218
  Serious: Yes (Other)
  Sender: FDA-Public Use
  Company Number: US-MERCK-0506USA03304

PATIENT
  Age: 76 Year
  Sex: Female
  Weight: 75 kg

DRUGS (14)
  1. VIOXX [Suspect]
     Indication: ARTHRALGIA
     Route: 048
     Dates: start: 19990101, end: 20040401
  2. PAXIL [Concomitant]
     Route: 065
     Dates: start: 19990101, end: 20040101
  3. TENORMIN [Concomitant]
     Route: 065
  4. SYNTHROID [Concomitant]
     Route: 065
  5. DIAZIDE [Concomitant]
     Route: 065
  6. MECLIZINE [Concomitant]
     Route: 065
  7. RISPERDAL [Concomitant]
     Route: 065
  8. AMBIEN [Concomitant]
     Route: 065
  9. PROTONIX [Concomitant]
     Route: 065
  10. NIASPAN [Concomitant]
     Route: 065
  11. ZYPREXA [Concomitant]
     Route: 065
  12. ASPIRIN [Concomitant]
     Route: 065
  13. CLONIDINE [Concomitant]
     Route: 065
  14. ALLOPURINOL [Concomitant]
     Route: 065

REACTIONS (4)
  - BREAST CANCER [None]
  - CEREBROVASCULAR ACCIDENT [None]
  - HALLUCINATION [None]
  - POLYTRAUMATISM [None]
